FAERS Safety Report 8027305-X (Version None)
Quarter: 2012Q1

REPORT INFORMATION
  Report Type: 
  Country: None (occurrence: None)
  Receive Date: 20120105
  Receipt Date: 20120105
  Transmission Date: 20120608
  Serious: Yes (Death, Hospitalization)
  Sender: FDA-Public Use
  Company Number: None

PATIENT
  Age: 62 Year
  Sex: Male
  Weight: 94 kg

DRUGS (2)
  1. PEMETREXED [Suspect]
     Indication: NON-SMALL CELL LUNG CANCER
     Dosage: 375 MG/M2 Q 3 WEEKS
     Dates: start: 20111215
  2. TEMSIROLIMUS [Suspect]
     Indication: NON-SMALL CELL LUNG CANCER
     Dosage: 15 MG WEEKLY
     Dates: start: 20111215

REACTIONS (4)
  - SEPTIC SHOCK [None]
  - RESPIRATORY FAILURE [None]
  - UNRESPONSIVE TO STIMULI [None]
  - PNEUMONIA [None]
